FAERS Safety Report 10140185 (Version 1)
Quarter: 2014Q2

REPORT INFORMATION
  Report Type: Spontaneous
  Country: GB (occurrence: GB)
  Receive Date: 20140429
  Receipt Date: 20140429
  Transmission Date: 20141212
  Serious: Yes (Other)
  Sender: FDA-Public Use
  Company Number: GB-PFIZER INC-2014114611

PATIENT
  Age: 69 Year
  Sex: Female

DRUGS (10)
  1. AMLODIPINE BESILATE [Suspect]
     Dosage: 5 MG, UNK
     Route: 048
     Dates: start: 1998
  2. METFORMIN HCL [Suspect]
     Dosage: 500 MG, UNK
     Route: 048
     Dates: start: 20100413
  3. RAMIPRIL [Suspect]
     Dosage: 10 MG, UNK
     Route: 048
     Dates: start: 1998
  4. LOSARTAN [Suspect]
     Dosage: 100 MG, UNK
     Route: 048
     Dates: start: 1998
  5. BETAHISTINE DIHYDROCHLORIDE [Suspect]
     Dosage: 8 MG, UNK
     Route: 048
     Dates: start: 1991
  6. BONVIVA [Suspect]
     Indication: METASTATIC PAIN
     Dosage: UNK
     Route: 065
     Dates: start: 20100828, end: 20120620
  7. CALCICHEW [Suspect]
     Dosage: 500 MG, UNK
     Route: 048
     Dates: start: 20100817
  8. FUROSEMIDE [Suspect]
     Dosage: 20 MG, UNK
     Route: 048
     Dates: start: 1998
  9. LETROZOLE [Suspect]
     Dosage: 2.5 MG, UNK
     Route: 048
     Dates: start: 20100817, end: 20120620
  10. IMATINIB [Concomitant]
     Indication: CHRONIC MYELOID LEUKAEMIA
     Dosage: UNK
     Route: 065

REACTIONS (1)
  - Thrombocytosis [Not Recovered/Not Resolved]
